FAERS Safety Report 26143548 (Version 1)
Quarter: 2025Q4

REPORT INFORMATION
  Report Type: Spontaneous
  Country: CN (occurrence: CN)
  Receive Date: 20251211
  Receipt Date: 20251211
  Transmission Date: 20260117
  Serious: Yes (Other)
  Sender: BAXTER
  Company Number: None

PATIENT
  Age: 57 Year
  Sex: Female
  Weight: 65 kg

DRUGS (2)
  1. CYCLOPHOSPHAMIDE [Suspect]
     Active Substance: CYCLOPHOSPHAMIDE
     Indication: Breast cancer female
     Dosage: 0.96 G, QD
     Route: 041
     Dates: start: 20251202, end: 20251202
  2. SODIUM CHLORIDE [Suspect]
     Active Substance: SODIUM CHLORIDE
     Indication: Medication dilution
     Dosage: 250 ML, QD
     Route: 041
     Dates: start: 20251202, end: 20251202

REACTIONS (4)
  - Xerophthalmia [Recovered/Resolved]
  - Dry eye [Recovering/Resolving]
  - Eye irritation [Recovering/Resolving]
  - Excessive eye blinking [Recovering/Resolving]

NARRATIVE: CASE EVENT DATE: 20251202
